FAERS Safety Report 18407478 (Version 1)
Quarter: 2020Q4

REPORT INFORMATION
  Report Type: Report from Study
  Country: US (occurrence: US)
  Receive Date: 20201020
  Receipt Date: 20201020
  Transmission Date: 20210114
  Serious: Yes (Other)
  Sender: FDA-Public Use
  Company Number: US-JNJFOC-20201018539

PATIENT
  Age: 48 Year
  Sex: Male

DRUGS (4)
  1. SPRAVATO [Suspect]
     Active Substance: ESKETAMINE
     Dosage: 84 MG, 1 TOTAL DOSE
     Dates: start: 20200925, end: 20200925
  2. SPRAVATO [Suspect]
     Active Substance: ESKETAMINE
     Dosage: 56 MG, 2 TOTAL DOSE
     Dates: start: 20200928, end: 20201002
  3. SPRAVATO [Suspect]
     Active Substance: ESKETAMINE
     Indication: DEPRESSION
     Dosage: 56 MG,6 TOTAL DOSES
     Dates: start: 20200824, end: 20200918
  4. SPRAVATO [Suspect]
     Active Substance: ESKETAMINE
     Dosage: 56 MG, 1 TOTAL DOSE, CURRENT DOSE
     Dates: start: 20201006, end: 20201006

REACTIONS (5)
  - Dyspnoea [Recovered/Resolved]
  - Sedation [Recovered/Resolved]
  - Pallor [Recovered/Resolved]
  - Dissociation [Recovered/Resolved]
  - Consciousness fluctuating [Recovered/Resolved]

NARRATIVE: CASE EVENT DATE: 20201006
